FAERS Safety Report 5141922-6 (Version None)
Quarter: 2006Q4

REPORT INFORMATION
  Report Type: 
  Country: None (occurrence: None)
  Receive Date: 20060919
  Receipt Date: 20060524
  Transmission Date: 20070319
  Serious: No
  Sender: FDA-Public Use
  Company Number: 2006US001157

PATIENT
  Age: 81 Year
  Sex: Female

DRUGS (9)
  1. VESICARE [Suspect]
     Indication: POLLAKIURIA
     Dosage: SEE IMAGE
     Route: 048
     Dates: start: 20060401, end: 20060401
  2. VESICARE [Suspect]
     Indication: POLLAKIURIA
     Dosage: SEE IMAGE
     Route: 048
     Dates: start: 20060521, end: 20060521
  3. VESICARE [Suspect]
     Indication: POLLAKIURIA
     Dosage: SEE IMAGE
     Route: 048
     Dates: start: 20060522
  4. LASIX [Concomitant]
  5. PRILOSEC [Concomitant]
  6. LEVOXYL [Concomitant]
  7. DARVOCET (DEXTROPROPOXYPHENE NAPSILATE) [Concomitant]
  8. VITAMINS [Concomitant]
  9. PROZAC [Concomitant]

REACTIONS (3)
  - DRUG INEFFECTIVE [None]
  - DRY THROAT [None]
  - DYSPHONIA [None]
